FAERS Safety Report 17265812 (Version 1)
Quarter: 2020Q1

REPORT INFORMATION
  Report Type: Spontaneous
  Country: US (occurrence: US)
  Receive Date: 20200114
  Receipt Date: 20200114
  Transmission Date: 20200409
  Serious: Yes (Hospitalization, Other)
  Sender: FDA-Public Use
  Company Number: US-AEGERION PHARMACEUTICAL, INC-AEGR000243

PATIENT
  Sex: Female

DRUGS (9)
  1. JUXTAPID [Suspect]
     Active Substance: LOMITAPIDE MESYLATE
     Indication: HYPERLIPIDAEMIA
     Dosage: 25 MG, QD
  2. JUXTAPID [Suspect]
     Active Substance: LOMITAPIDE MESYLATE
     Dosage: 20 MG, QD
  3. FENOFIBRATE. [Concomitant]
     Active Substance: FENOFIBRATE
     Indication: HYPERTRIGLYCERIDAEMIA
     Dosage: 200 MG, QD
  4. JUXTAPID [Suspect]
     Active Substance: LOMITAPIDE MESYLATE
     Indication: HYPERTRIGLYCERIDAEMIA
     Dosage: ALTERNATING 12.5 MG/D AND 25 MG/D
  5. JUXTAPID [Suspect]
     Active Substance: LOMITAPIDE MESYLATE
     Dosage: 12.5 MG, QD
  6. JUXTAPID [Suspect]
     Active Substance: LOMITAPIDE MESYLATE
     Dosage: 30 UNK, UNK
  7. JUXTAPID [Suspect]
     Active Substance: LOMITAPIDE MESYLATE
     Dosage: 40 MG, QD
  8. JUXTAPID [Suspect]
     Active Substance: LOMITAPIDE MESYLATE
     Indication: PROPHYLAXIS
     Dosage: 12.5 MG, QD
     Dates: start: 19990607
  9. JUXTAPID [Suspect]
     Active Substance: LOMITAPIDE MESYLATE
     Dosage: ALTERNATING 20 MG/D AND 40 MG/D

REACTIONS (9)
  - Pancreatitis relapsing [Unknown]
  - Hepatitis [Unknown]
  - Off label use [Unknown]
  - Blood alkaline phosphatase increased [None]
  - Cholestasis [None]
  - Hepatic steatosis [Unknown]
  - Aspartate aminotransferase increased [Unknown]
  - Alanine aminotransferase increased [Unknown]
  - Hepatic fibrosis [None]

NARRATIVE: CASE EVENT DATE: 2000
